FAERS Safety Report 18089477 (Version 2)
Quarter: 2020Q3

REPORT INFORMATION
  Report Type: Spontaneous
  Country: US (occurrence: US)
  Receive Date: 20200728
  Receipt Date: 20200728
  Transmission Date: 20201103
  Serious: No
  Sender: FDA-Public Use
  Company Number: US-OSMOTICA_PHARMACEUTICAL_US_LLC-POI0573201900534

PATIENT
  Age: 72 Year
  Sex: Female

DRUGS (2)
  1. DIVIGEL [Suspect]
     Active Substance: ESTRADIOL
     Route: 062
     Dates: start: 20191220
  2. DIVIGEL [Suspect]
     Active Substance: ESTRADIOL
     Indication: BLOOD OESTROGEN DECREASED
     Route: 062
     Dates: start: 20191204, end: 20191217

REACTIONS (2)
  - Abdominal pain upper [Unknown]
  - Breast tenderness [Unknown]

NARRATIVE: CASE EVENT DATE: 201912
